FAERS Safety Report 6228882-1 (Version None)
Quarter: 2009Q2

REPORT INFORMATION
  Report Type: 
  Country: None (occurrence: None)
  Receive Date: 20090615
  Receipt Date: 20071115
  Transmission Date: 20091009
  Serious: Yes (Hospitalization, Other)
  Sender: FDA-Public Use
  Company Number: US-ASTRAZENECA-2007UW16994

PATIENT
  Age: 46 Year
  Sex: Male
  Weight: 39.1 kg

DRUGS (11)
  1. SEROQUEL [Suspect]
     Indication: DEPRESSION
     Route: 048
     Dates: start: 20000616, end: 20010508
  2. SEROQUEL [Suspect]
     Route: 048
     Dates: start: 20010123
  3. RISPERDAL [Concomitant]
     Dosage: 2 MG, 4 MG
  4. ZYPREXA [Concomitant]
  5. REMERON [Concomitant]
  6. TRAZODONE HCL [Concomitant]
     Dosage: 50, 100, 150, 200 MG
  7. PAXIL [Concomitant]
     Dosage: 10, 20, 30, 40 MG
  8. ZOLOFT [Concomitant]
     Dosage: 20, 50, 100 MG
  9. AMBIEN [Concomitant]
  10. ZOCOR [Concomitant]
     Dates: start: 20060704
  11. TYLENOL (CAPLET) [Concomitant]
     Dates: start: 20071030

REACTIONS (16)
  - ACCELERATED HYPERTENSION [None]
  - BLOOD CHOLESTEROL INCREASED [None]
  - BLOOD TRIGLYCERIDES INCREASED [None]
  - CHEST PAIN [None]
  - DIABETIC COMPLICATION [None]
  - DIABETIC NEPHROPATHY [None]
  - DRUG ADMINISTRATION ERROR [None]
  - HEADACHE [None]
  - HYPERTENSION [None]
  - HYPERTENSIVE CRISIS [None]
  - HYPERTRIGLYCERIDAEMIA [None]
  - POLYDIPSIA [None]
  - POLYURIA [None]
  - TINNITUS [None]
  - TYPE 2 DIABETES MELLITUS [None]
  - URINARY HESITATION [None]
